FAERS Safety Report 17921291 (Version 1)
Quarter: 2020Q2

REPORT INFORMATION
  Report Type: Spontaneous
  Country: IT (occurrence: IT)
  Receive Date: 20200622
  Receipt Date: 20200622
  Transmission Date: 20200714
  Serious: Yes (Other)
  Sender: FDA-Public Use
  Company Number: IT-AUROBINDO-AUR-APL-2020-029868

PATIENT
  Age: 68 Year
  Sex: Male

DRUGS (1)
  1. OXALIPLATIN. [Suspect]
     Active Substance: OXALIPLATIN
     Indication: PULMONARY MASS
     Dosage: 1 DOSAGE FORM, CYCLICAL
     Route: 042

REACTIONS (6)
  - Eyelid oedema [Recovering/Resolving]
  - Pharyngeal oedema [Recovering/Resolving]
  - Oedema peripheral [Recovering/Resolving]
  - Tongue oedema [Recovering/Resolving]
  - Paraesthesia [Recovering/Resolving]
  - Erythema [Recovering/Resolving]

NARRATIVE: CASE EVENT DATE: 20200201
